FAERS Safety Report 7037525-9 (Version None)
Quarter: 2010Q4

REPORT INFORMATION
  Report Type: 
  Country: None (occurrence: None)
  Receive Date: 20101011
  Receipt Date: 20101006
  Transmission Date: 20110411
  Serious: Yes (Death, Hospitalization)
  Sender: FDA-Public Use
  Company Number: B0678561A

PATIENT
  Sex: Male

DRUGS (14)
  1. REQUIP [Suspect]
     Indication: PARKINSON'S DISEASE
     Dates: start: 20080425
  2. DOMPERIDON [Suspect]
     Indication: PARKINSON'S DISEASE
     Dosage: 10MG FOUR TIMES PER DAY
     Dates: start: 20100212
  3. STALEVO 100 [Suspect]
     Indication: PARKINSON'S DISEASE
     Dates: start: 20100624
  4. ASPIRIN [Concomitant]
     Indication: PROPHYLAXIS
     Dosage: 100MG PER DAY
  5. TOREM [Concomitant]
     Indication: HYPERTENSION
     Dosage: 5MG PER DAY
  6. TAMSULOSIN [Concomitant]
     Indication: HYPERPLASIA
     Dosage: .4MG PER DAY
  7. SIMVASTATIN [Concomitant]
     Dosage: 20MG PER DAY
  8. BELOC ZOK COMP [Concomitant]
     Indication: HYPERTENSION
     Dosage: 95MG PER DAY
  9. ISOMONIT [Concomitant]
     Indication: ANGINA PECTORIS
     Dosage: 20MG PER DAY
  10. LACTULOSE [Concomitant]
     Dosage: 20ML TWICE PER DAY
  11. NOVAMINSULFON [Concomitant]
     Dosage: 30DROP THREE TIMES PER DAY
  12. DELIX [Concomitant]
     Indication: HYPERTENSION
     Dosage: 2.5MG PER DAY
  13. OXYGESIC [Concomitant]
     Dosage: 40MG TWICE PER DAY
  14. ORFIRIL [Concomitant]
     Dosage: 1000MG PER DAY
     Dates: start: 20070725

REACTIONS (2)
  - DEATH [None]
  - HOSPITALISATION [None]
